FAERS Safety Report 7091480-4 (Version None)
Quarter: 2010Q4

REPORT INFORMATION
  Report Type: 
  Country: None (occurrence: None)
  Receive Date: 20101105
  Receipt Date: 20101105
  Transmission Date: 20110411
  Serious: Yes (Other)
  Sender: FDA-Public Use
  Company Number: None

PATIENT
  Sex: Female
  Weight: 8 kg

DRUGS (2)
  1. TEETHING GEL 6X HPUS HYLAND'S [Suspect]
     Indication: TEETHING
     Dosage: 1 SQUEEZE 3-4X A DAY PO
     Route: 048
     Dates: start: 20101029, end: 20101104
  2. TEETHING TABLETS 3X HPUS HYLAND'S [Suspect]
     Indication: TEETHING
     Dosage: 4 TABLETS 3-4X A DAY PO
     Route: 048
     Dates: start: 20100828, end: 20101029

REACTIONS (5)
  - ABNORMAL BEHAVIOUR [None]
  - CONVULSION [None]
  - HYPOTONIA [None]
  - LETHARGY [None]
  - PALLOR [None]
